FAERS Safety Report 8256705-8 (Version None)
Quarter: 2012Q2

REPORT INFORMATION
  Report Type: 
  Country: None (occurrence: None)
  Receive Date: 20120403
  Receipt Date: 20120328
  Transmission Date: 20120825
  Serious: No
  Sender: FDA-Public Use
  Company Number: US-PFIZER INC-2012080839

PATIENT
  Sex: Male

DRUGS (2)
  1. NEURONTIN [Suspect]
     Dosage: UNK
  2. CELEBREX [Concomitant]
     Indication: ARTHRITIS

REACTIONS (2)
  - IRRITABILITY [None]
  - NERVOUSNESS [None]
